FAERS Safety Report 5025788-0 (Version None)
Quarter: 2006Q2

REPORT INFORMATION
  Report Type: 
  Country: None (occurrence: None)
  Receive Date: 20060608
  Receipt Date: 20060608
  Transmission Date: 20061013
  Serious: Yes (Other)
  Sender: FDA-Public Use
  Company Number: None

PATIENT
  Age: 50 Year
  Sex: Male
  Weight: 77.928 kg

DRUGS (11)
  1. ERBITUX [Suspect]
     Indication: COLON CANCER
     Dosage: 800 MG IV
     Route: 042
     Dates: start: 20060530
  2. ERBITUX [Suspect]
     Indication: COLON CANCER
     Dosage: 800 MG IV
     Route: 042
     Dates: start: 20060531
  3. OXALIPLATIN [Concomitant]
  4. LEUCOVORIN [Concomitant]
  5. FLUOROURACIL [Concomitant]
  6. DECADRON [Concomitant]
  7. ALOXI [Concomitant]
  8. EMEND TRIFOLD [Concomitant]
  9. BENADRYL [Concomitant]
  10. IRINOTECAN [Concomitant]
  11. COUMADIN [Concomitant]

REACTIONS (4)
  - BLOOD PRESSURE DECREASED [None]
  - ERYTHEMA [None]
  - PRURITUS [None]
  - RASH [None]
